FAERS Safety Report 7273156-3 (Version None)
Quarter: 2011Q1

REPORT INFORMATION
  Report Type: 
  Country: None (occurrence: None)
  Receive Date: 20110203
  Receipt Date: 20110125
  Transmission Date: 20110831
  Serious: Yes (Other)
  Sender: FDA-Public Use
  Company Number: CA-JNJFOC-20110107119

PATIENT
  Sex: Female
  Weight: 54.5 kg

DRUGS (4)
  1. CALCIUM [Concomitant]
  2. REMICADE [Suspect]
     Indication: RHEUMATOID ARTHRITIS
     Route: 042
  3. CELEBREX [Concomitant]
  4. VITAMIN D [Concomitant]

REACTIONS (2)
  - INFECTION [None]
  - PYODERMA GANGRENOSUM [None]
